FAERS Safety Report 5798863-0 (Version None)
Quarter: 2008Q2

REPORT INFORMATION
  Report Type: 
  Country: None (occurrence: None)
  Receive Date: 20080630
  Receipt Date: 20080616
  Transmission Date: 20081010
  Serious: Yes (Death)
  Sender: FDA-Public Use
  Company Number: US023893

PATIENT
  Sex: Male

DRUGS (1)
  1. ACTIQ [Suspect]
     Dosage: BUCCAL
     Route: 002

REACTIONS (1)
  - DEATH [None]
